FAERS Safety Report 9053708 (Version 1)
Quarter: 2013Q1

REPORT INFORMATION
  Report Type: Spontaneous
  Country: US (occurrence: None)
  Receive Date: 20130201
  Receipt Date: 20130201
  Transmission Date: 20140127
  Serious: Yes (Hospitalization)
  Sender: FDA-Public Use
  Company Number: None

PATIENT
  Age: 65 Year
  Sex: Male
  Weight: 87 kg

DRUGS (1)
  1. DAPSONE [Suspect]
     Indication: ANTIFUNGAL PROPHYLAXIS
     Route: 048
     Dates: start: 20120927, end: 20121116

REACTIONS (6)
  - Hypophagia [None]
  - Hypotension [None]
  - Renal failure acute [None]
  - Deep vein thrombosis [None]
  - Haemolytic anaemia [None]
  - Tachycardia [None]
